FAERS Safety Report 8619752 (Version 2)
Quarter: 2014Q1

REPORT INFORMATION
  Report Type: Spontaneous
  Country: US (occurrence: US)
  Receive Date: 20120618
  Receipt Date: 20140325
  Transmission Date: 20141002
  Serious: Yes (Other)
  Sender: FDA-Public Use
  Company Number: US-ROCHE-1078047

PATIENT
  Sex: Female

DRUGS (13)
  1. LUCENTIS [Suspect]
     Indication: PRODUCT USED FOR UNKNOWN INDICATION
     Route: 065
  2. CARVEDILOL [Concomitant]
     Route: 065
  3. ASA [Concomitant]
     Route: 048
  4. AMLODIPINE [Concomitant]
  5. HYDRALAZINE [Concomitant]
  6. LANTUS [Concomitant]
  7. ISOSORBIDE [Concomitant]
  8. NOVOLOG [Concomitant]
  9. CLONIDINE [Concomitant]
  10. LASIX [Concomitant]
  11. TRAMADOL [Concomitant]
  12. LIPITOR [Concomitant]
  13. XANAX [Concomitant]

REACTIONS (1)
  - Cerebrovascular accident [Recovered/Resolved]
